FAERS Safety Report 9830947 (Version 3)
Quarter: 2014Q1

REPORT INFORMATION
  Report Type: Spontaneous
  Country: JP (occurrence: JP)
  Receive Date: 20140120
  Receipt Date: 20140204
  Transmission Date: 20141002
  Serious: Yes (Hospitalization)
  Sender: FDA-Public Use
  Company Number: PHHY2014JP005123

PATIENT
  Age: 76 Year
  Sex: Female

DRUGS (2)
  1. RIVASTIGMINE [Suspect]
     Indication: DEMENTIA WITH LEWY BODIES
     Route: 062
  2. RIVASTIGMINE [Suspect]
     Indication: OFF LABEL USE

REACTIONS (2)
  - Feeling abnormal [Recovered/Resolved]
  - Dysphoria [Recovered/Resolved]
